FAERS Safety Report 10243969 (Version 1)
Quarter: 2014Q2

REPORT INFORMATION
  Report Type: Spontaneous
  Country: US (occurrence: None)
  Receive Date: 20140616
  Receipt Date: 20140616
  Transmission Date: 20141212
  Serious: Yes (Other)
  Sender: FDA-Public Use
  Company Number: 2014060004

PATIENT
  Age: 41 Year
  Sex: Female
  Weight: 51.71 kg

DRUGS (2)
  1. DYMISTA [Suspect]
     Indication: SINUSITIS
     Route: 055
     Dates: start: 20140518, end: 20140521
  2. DYMISTA [Suspect]
     Indication: SUDDEN HEARING LOSS
     Route: 055
     Dates: start: 20140518, end: 20140521

REACTIONS (12)
  - Dyspepsia [None]
  - Feeling abnormal [None]
  - Erythema [None]
  - VIIth nerve paralysis [None]
  - Hemiplegia [None]
  - Respiratory rate decreased [None]
  - Heart rate abnormal [None]
  - Cardiac disorder [None]
  - Rash pruritic [None]
  - Asthenia [None]
  - Nervous system disorder [None]
  - Inappropriate schedule of drug administration [None]
